FAERS Safety Report 8438094-9 (Version None)
Quarter: 2012Q2

REPORT INFORMATION
  Report Type: 
  Country: None (occurrence: None)
  Receive Date: 20120614
  Receipt Date: 20120601
  Transmission Date: 20120825
  Serious: No
  Sender: FDA-Public Use
  Company Number: US-ACTELION-A-NJ2012-66132

PATIENT

DRUGS (2)
  1. TRACLEER [Suspect]
     Indication: PULMONARY ARTERIAL HYPERTENSION
     Dosage: UNK
     Route: 048
     Dates: start: 20120125
  2. SILDENAFIL [Concomitant]

REACTIONS (8)
  - MUSCLE SPASMS [None]
  - PARAESTHESIA [None]
  - FLUID RETENTION [None]
  - HYPOAESTHESIA [None]
  - HYPOTENSION [None]
  - DYSGEUSIA [None]
  - DEHYDRATION [None]
  - DECREASED APPETITE [None]
